FAERS Safety Report 6724544-2 (Version None)
Quarter: 2010Q2

REPORT INFORMATION
  Report Type: 
  Country: None (occurrence: None)
  Receive Date: 20100513
  Receipt Date: 20100503
  Transmission Date: 20101027
  Serious: Yes (Other)
  Sender: FDA-Public Use
  Company Number: CA-PFIZER INC-2010033163

PATIENT
  Age: 62 Year
  Sex: Female

DRUGS (5)
  1. CHAMPIX [Suspect]
     Indication: SMOKING CESSATION THERAPY
     Dosage: 0.5 MG, 2X/DAY
     Dates: start: 20100301, end: 20100306
  2. LORAZEPAM [Concomitant]
     Indication: ANXIETY
     Dosage: 1 MG, 2X/DAY
  3. QUETIAPINE [Concomitant]
     Dosage: 25 MG, 1X/DAY AT BEDTIME
  4. RABEPRAZOLE [Concomitant]
     Indication: HYPERCHLORHYDRIA
     Dosage: 20 MG, 1X/DAY
  5. HYZAAR [Concomitant]
     Indication: BLOOD PRESSURE ABNORMAL
     Dosage: 25/100 MG

REACTIONS (1)
  - DEPRESSION [None]
